FAERS Safety Report 4717994-7 (Version None)
Quarter: 2005Q3

REPORT INFORMATION
  Report Type: 
  Country: None (occurrence: None)
  Receive Date: 20050718
  Receipt Date: 20050228
  Transmission Date: 20060218
  Serious: No
  Sender: FDA-Public Use
  Company Number: 2005000466

PATIENT
  Age: 56 Year
  Sex: Female
  Weight: 61.2356 kg

DRUGS (7)
  1. TARCEVA [Suspect]
     Indication: NON-SMALL CELL LUNG CANCER
     Dosage: 150 MG (QD), ORAL
     Route: 048
  2. GLUCOPHAGE [Concomitant]
  3. DIABETA [Concomitant]
  4. PROTONIX [Concomitant]
  5. ZOFRAN [Concomitant]
  6. TRAZODONE (TRAZODONE) [Concomitant]
  7. HYDROCODONE (HYDROCODONE) [Concomitant]

REACTIONS (6)
  - DIARRHOEA [None]
  - DIZZINESS [None]
  - DRY SKIN [None]
  - FATIGUE [None]
  - LUNG INFECTION [None]
  - RASH [None]
